FAERS Safety Report 5484748-6 (Version None)
Quarter: 2007Q4

REPORT INFORMATION
  Report Type: 
  Country: None (occurrence: None)
  Receive Date: 20071012
  Receipt Date: 20071002
  Transmission Date: 20080405
  Serious: Yes (Other)
  Sender: FDA-Public Use
  Company Number: JP-PFIZER INC-2007080337

PATIENT
  Age: 42 Year
  Sex: Male

DRUGS (2)
  1. DIFLUCAN [Suspect]
     Dosage: DAILY DOSE:200MG
     Route: 048
  2. ALL OTHER THERAPEUTIC PRODUCTS [Concomitant]

REACTIONS (1)
  - INTERSTITIAL LUNG DISEASE [None]
